FAERS Safety Report 6997698-0 (Version None)
Quarter: 2010Q3

REPORT INFORMATION
  Report Type: 
  Country: None (occurrence: None)
  Receive Date: 20100918
  Receipt Date: 20091120
  Transmission Date: 20110219
  Serious: No
  Sender: FDA-Public Use
  Company Number: US-WYE-H12296709

PATIENT
  Sex: Female
  Weight: 56.75 kg

DRUGS (3)
  1. PRISTIQ [Suspect]
     Route: 048
     Dates: start: 20091107
  2. WELLBUTRIN [Concomitant]
  3. LEXAPRO [Concomitant]

REACTIONS (4)
  - DIZZINESS [None]
  - INTENTIONAL DRUG MISUSE [None]
  - MIGRAINE [None]
  - NAUSEA [None]
